FAERS Safety Report 6839301-6 (Version None)
Quarter: 2010Q3

REPORT INFORMATION
  Report Type: 
  Country: None (occurrence: None)
  Receive Date: 20100714
  Receipt Date: 20100629
  Transmission Date: 20110219
  Serious: No
  Sender: FDA-Public Use
  Company Number: PHHY2010US33548

PATIENT
  Sex: Male
  Weight: 169 kg

DRUGS (8)
  1. TASIGNA [Suspect]
     Indication: CHRONIC MYELOID LEUKAEMIA
     Dosage: 200 MG, QD
     Route: 048
     Dates: start: 20100505, end: 20100615
  2. ADVAIR DISKUS 100/50 [Concomitant]
     Dosage: UNK
     Dates: start: 20100505
  3. SPIRIVA [Concomitant]
     Dosage: 18 UG, QD
     Dates: start: 20100505
  4. SPIRIVA [Concomitant]
     Dosage: UNK
     Dates: start: 20100519
  5. SPIRIVA [Concomitant]
     Dosage: UNK
     Dates: start: 20100615
  6. PROAIR HFA [Concomitant]
     Dosage: UNK
  7. ALBUTEROL SULFATE [Concomitant]
  8. SPRYCEL [Concomitant]

REACTIONS (11)
  - ARTHRALGIA [None]
  - CONSTIPATION [None]
  - GLOMERULAR FILTRATION RATE DECREASED [None]
  - HAEMOGLOBIN DECREASED [None]
  - HYPERKERATOSIS [None]
  - LYMPHOCYTE COUNT DECREASED [None]
  - MEAN CELL HAEMOGLOBIN DECREASED [None]
  - MEAN PLATELET VOLUME DECREASED [None]
  - MUSCLE SPASMS [None]
  - RED CELL DISTRIBUTION WIDTH INCREASED [None]
  - WHITE BLOOD CELL COUNT DECREASED [None]
